FAERS Safety Report 5474497-2 (Version None)
Quarter: 2007Q3

REPORT INFORMATION
  Report Type: 
  Country: None (occurrence: None)
  Receive Date: 20070928
  Receipt Date: 20070918
  Transmission Date: 20080115
  Serious: Yes (Death)
  Sender: FDA-Public Use
  Company Number: 200709AGG00722

PATIENT
  Age: 80 Year
  Sex: Male

DRUGS (6)
  1. AGGRASTAT [Suspect]
     Indication: MYOCARDIAL INFARCTION
     Dosage: (INTRAVENOUS BOLUS), (INTRAVENOUS DRIP)
     Route: 040
     Dates: start: 20070813, end: 20070813
  2. AGGRASTAT [Suspect]
     Indication: MYOCARDIAL INFARCTION
     Dosage: (INTRAVENOUS BOLUS), (INTRAVENOUS DRIP)
     Route: 040
     Dates: start: 20070813, end: 20070813
  3. CLOPIDOGREL BISULFATE [Concomitant]
  4. HEPARIN [Concomitant]
  5. ASPIRIN [Concomitant]
  6. ZOCOR [Concomitant]

REACTIONS (1)
  - CARDIO-RESPIRATORY ARREST [None]
